FAERS Safety Report 5168440-3 (Version None)
Quarter: 2006Q4

REPORT INFORMATION
  Report Type: 
  Country: None (occurrence: None)
  Receive Date: 20061208
  Receipt Date: 20061019
  Transmission Date: 20070319
  Serious: Yes (Hospitalization)
  Sender: FDA-Public Use
  Company Number: AU-ROCHE-467807

PATIENT
  Age: 57 Year
  Sex: Male

DRUGS (2)
  1. CAPECITABINE [Suspect]
     Dosage: IN TWO DIVIDED DOSES ON DAYS 1 TO 14 EVERY 3 WEEKS (AS PER PROTOCOL) LAST DOSE DATE THIS CYCLE: 11 +
     Route: 048
     Dates: start: 20060928
  2. BEVACIZUMAB [Suspect]
     Dosage: FREQUENCY AS PER PROTOCOL
     Route: 042

REACTIONS (12)
  - ABDOMINAL DISTENSION [None]
  - ASTHENIA [None]
  - CONVULSION [None]
  - DEHYDRATION [None]
  - DIARRHOEA [None]
  - FALL [None]
  - FATIGUE [None]
  - OEDEMA [None]
  - PROCTALGIA [None]
  - SKIN LACERATION [None]
  - SMALL INTESTINAL OBSTRUCTION [None]
  - THROMBOCYTOPENIA [None]
